FAERS Safety Report 4956453-3 (Version None)
Quarter: 2006Q1

REPORT INFORMATION
  Report Type: 
  Country: None (occurrence: None)
  Receive Date: 20060328
  Receipt Date: 20060328
  Transmission Date: 20060701
  Serious: Yes (Hospitalization)
  Sender: FDA-Public Use
  Company Number: None

PATIENT
  Age: 51 Year
  Sex: Female
  Weight: 76 kg

DRUGS (9)
  1. OLANZAPINE [Suspect]
     Indication: SCHIZOPHRENIA
     Dosage: 20 MG PO DAILY AT HS
     Route: 048
  2. CLONAZEPAM [Concomitant]
  3. FEXOFENADINE HCL [Concomitant]
  4. TRAMADOL HCL [Concomitant]
  5. LIPITOR [Concomitant]
  6. WELLBUTRIN [Concomitant]
  7. AMANTADINE HCL [Concomitant]
  8. PROTONIX [Concomitant]
  9. ZYPREXA [Concomitant]

REACTIONS (2)
  - DIABETES MELLITUS [None]
  - DIABETIC KETOACIDOSIS [None]
